FAERS Safety Report 12349072 (Version 1)
Quarter: 2016Q2

REPORT INFORMATION
  Report Type: Spontaneous
  Country: US (occurrence: US)
  Receive Date: 20160509
  Receipt Date: 20160509
  Transmission Date: 20160815
  Serious: No
  Sender: FDA-Public Use
  Company Number: PHEH2016US011477

PATIENT
  Sex: Male

DRUGS (1)
  1. TASIGNA [Suspect]
     Active Substance: NILOTINIB
     Indication: WHITE BLOOD CELL COUNT INCREASED
     Dosage: 400 MG, QD
     Route: 065
     Dates: start: 20160316

REACTIONS (1)
  - Platelet count decreased [Unknown]
